FAERS Safety Report 4523023-0 (Version None)
Quarter: 2004Q4

REPORT INFORMATION
  Report Type: 
  Country: None (occurrence: None)
  Receive Date: 20041208
  Receipt Date: 20041125
  Transmission Date: 20050328
  Serious: Yes (Hospitalization)
  Sender: FDA-Public Use
  Company Number: 2004212649FR

PATIENT
  Age: 61 Year
  Sex: Male

DRUGS (10)
  1. DOXORUBICIN HCL [Suspect]
     Indication: CHEMOTHERAPY
     Dosage: INTRAVENOUS
     Route: 042
     Dates: start: 20040216, end: 20040216
  2. VANTIN [Suspect]
     Indication: ILL-DEFINED DISORDER
     Dosage: ORAL
     Route: 048
     Dates: start: 20040305, end: 20040312
  3. PREDNISOLONE SODIUM SULFOBENZOATE (PRENSIDOLONE SODIUM SULFOBENZOATE) [Suspect]
     Indication: CHEMOTHERAPY
     Dosage: ORAL
     Route: 048
     Dates: start: 20040226, end: 20040220
  4. OFLOXACIN [Suspect]
     Indication: ILL-DEFINED DISORDER
     Dosage: ORAL
     Route: 048
     Dates: start: 20040305, end: 20040312
  5. CYCLOPHOSPHAMIDE [Suspect]
     Indication: CHEMOTHERAPY
     Dosage: INTRAVENOUS
     Route: 042
     Dates: start: 20040216, end: 20040220
  6. VINCRISTINE SULFATE [Suspect]
     Indication: CHEMOTHERAPY
     Dosage: INTRAVENOUS
     Route: 042
     Dates: start: 20040216, end: 20040216
  7. METHYLPREDNSIOLONE SODUM SUCCINATE (METHYLPREDNSIOLONE SODIUM SUCCINAT [Concomitant]
  8. ONDANSETRON HCL [Concomitant]
  9. ALLOPURINOL [Concomitant]
  10. FENOFIBRATE [Concomitant]

REACTIONS (5)
  - HYPOGAMMAGLOBULINAEMIA [None]
  - INFECTION [None]
  - NEUTROPHIL PERCENTAGE DECREASED [None]
  - WHITE BLOOD CELL COUNT DECREASED [None]
  - WHITE BLOOD CELL COUNT INCREASED [None]
